FAERS Safety Report 5867920-2 (Version None)
Quarter: 2008Q3

REPORT INFORMATION
  Report Type: 
  Country: None (occurrence: None)
  Receive Date: 20080902
  Receipt Date: 20080710
  Transmission Date: 20090109
  Serious: No
  Sender: FDA-Public Use
  Company Number: US-ABBOTT-08P-163-0462347-00

PATIENT
  Sex: Female
  Weight: 63.56 kg

DRUGS (6)
  1. DEPAKOTE ER [Suspect]
     Indication: MIGRAINE
     Dates: start: 20080401
  2. DEPAKOTE ER [Suspect]
  3. DEPAKOTE ER [Suspect]
  4. DEPAKOTE ER [Suspect]
     Dates: start: 20080601
  5. NORTRIPTYLINE HCL [Concomitant]
     Indication: DEPRESSION
     Route: 048
  6. NORTRIPTYLINE HCL [Concomitant]
     Indication: ANXIETY

REACTIONS (2)
  - ALOPECIA [None]
  - MIGRAINE [None]
